FAERS Safety Report 4295122-2 (Version None)
Quarter: 2004Q1

REPORT INFORMATION
  Report Type: 
  Country: None (occurrence: None)
  Receive Date: 20040212
  Receipt Date: 20040209
  Transmission Date: 20041129
  Serious: Yes (Other)
  Sender: FDA-Public Use
  Company Number: US-JNJFOC-20030901296

PATIENT
  Age: 37 Year
  Sex: Female
  Weight: 62.5964 kg

DRUGS (2)
  1. TOPAMAX [Suspect]
     Indication: PAIN
     Dosage: 25 MG, 1 IN 1 DAY, ORAL
     Route: 048
     Dates: start: 19991113, end: 19991118
  2. NARCOTICS (ANALGESICS) [Concomitant]

REACTIONS (5)
  - BLINDNESS TRANSIENT [None]
  - INTRAOCULAR PRESSURE INCREASED [None]
  - IRIDOTOMY [None]
  - PAIN [None]
  - SCLERITIS [None]
